FAERS Safety Report 4876874-7 (Version None)
Quarter: 2006Q1

REPORT INFORMATION
  Report Type: 
  Country: None (occurrence: None)
  Receive Date: 20060109
  Receipt Date: 20060109
  Transmission Date: 20060701
  Serious: Yes (Hospitalization)
  Sender: FDA-Public Use
  Company Number: None

PATIENT
  Age: 63 Year
  Sex: Male
  Weight: 64.9 kg

DRUGS (2)
  1. DOCTTAXEL 25 MG/ML AVENTIS [Suspect]
     Indication: NON-SMALL CELL LUNG CANCER
     Dosage: 45.5 MG QWX3 EVERY 4 WK IV DRIP
     Route: 041
     Dates: start: 20050817, end: 20051116
  2. TARGRETIN [Suspect]
     Dosage: 716 MG = 10 TABS QD PO
     Route: 048
     Dates: start: 20050817, end: 20051123

REACTIONS (15)
  - ANAEMIA [None]
  - ARRHYTHMIA [None]
  - BLOOD CREATININE DECREASED [None]
  - BODY TEMPERATURE INCREASED [None]
  - COLONIC POLYP [None]
  - DUODENAL ULCER [None]
  - EROSIVE DUODENITIS [None]
  - ERYTHEMA [None]
  - FATIGUE [None]
  - HAEMORRHOIDS [None]
  - OCCULT BLOOD POSITIVE [None]
  - PLATELET COUNT INCREASED [None]
  - RECTAL HAEMORRHAGE [None]
  - TACHYCARDIA [None]
  - WHITE BLOOD CELL COUNT INCREASED [None]
